FAERS Safety Report 25405213 (Version 1)
Quarter: 2025Q2

REPORT INFORMATION
  Report Type: Spontaneous
  Country: FR (occurrence: FR)
  Receive Date: 20250606
  Receipt Date: 20250606
  Transmission Date: 20250717
  Serious: Yes (Death)
  Sender: STRIDES
  Company Number: FR-STRIDES ARCOLAB LIMITED-2025SP006904

PATIENT
  Age: 23 Year
  Sex: Female

DRUGS (2)
  1. CYCLOSPORINE [Suspect]
     Active Substance: CYCLOSPORINE
     Indication: Product used for unknown indication
     Route: 065
  2. OMALIZUMAB [Concomitant]
     Active Substance: OMALIZUMAB
     Indication: Asthma
     Route: 065

REACTIONS (3)
  - Sinus tachycardia [Fatal]
  - Intentional overdose [Fatal]
  - Intentional self-injury [Fatal]
